FAERS Safety Report 17926814 (Version 5)
Quarter: 2022Q2

REPORT INFORMATION
  Report Type: Spontaneous
  Country: US (occurrence: US)
  Receive Date: 20200623
  Receipt Date: 20220525
  Transmission Date: 20220721
  Serious: Yes (Hospitalization, Other)
  Sender: FDA-Public Use
  Company Number: US-GILEAD-2020-0473793

PATIENT
  Age: 67 Year
  Sex: Female
  Weight: 55.329 kg

DRUGS (55)
  1. TRUVADA [Suspect]
     Active Substance: EMTRICITABINE\TENOFOVIR DISOPROXIL FUMARATE
     Indication: HIV infection
     Dosage: UNK
     Route: 048
     Dates: start: 2004, end: 20170606
  2. TRUVADA [Suspect]
     Active Substance: EMTRICITABINE\TENOFOVIR DISOPROXIL FUMARATE
     Dosage: UNK
     Route: 048
     Dates: start: 20070515, end: 20070626
  3. TRUVADA [Suspect]
     Active Substance: EMTRICITABINE\TENOFOVIR DISOPROXIL FUMARATE
     Dosage: UNK
     Route: 048
     Dates: start: 20120813, end: 20170606
  4. TRUVADA [Suspect]
     Active Substance: EMTRICITABINE\TENOFOVIR DISOPROXIL FUMARATE
     Dosage: UNK
     Route: 048
     Dates: start: 2007, end: 20070626
  5. TRUVADA [Suspect]
     Active Substance: EMTRICITABINE\TENOFOVIR DISOPROXIL FUMARATE
     Dosage: UNK
     Route: 048
     Dates: start: 20120813, end: 20170701
  6. VIREAD [Suspect]
     Active Substance: TENOFOVIR DISOPROXIL FUMARATE
     Indication: HIV infection
     Dosage: UNK
     Route: 065
     Dates: start: 2004, end: 2007
  7. LOSARTAN [Concomitant]
     Active Substance: LOSARTAN
  8. CALCIUM ACETATE [Concomitant]
     Active Substance: CALCIUM ACETATE
  9. RENVELA [Concomitant]
     Active Substance: SEVELAMER CARBONATE
  10. SENSIPAR [Concomitant]
     Active Substance: CINACALCET HYDROCHLORIDE
  11. ACETAMINOPHEN [Concomitant]
     Active Substance: ACETAMINOPHEN
  12. AMOXICILLIN [Concomitant]
     Active Substance: AMOXICILLIN
  13. ASPIRIN [Concomitant]
     Active Substance: ASPIRIN
  14. CRESTOR [Concomitant]
     Active Substance: ROSUVASTATIN CALCIUM
  15. FUZEON [Concomitant]
     Active Substance: ENFUVIRTIDE
  16. INTELENCE [Concomitant]
     Active Substance: ETRAVIRINE
  17. ISENTRESS [Concomitant]
     Active Substance: RALTEGRAVIR POTASSIUM
  18. KALETRA [Concomitant]
     Active Substance: LOPINAVIR\RITONAVIR
  19. NORVIR [Concomitant]
     Active Substance: RITONAVIR
  20. PREZISTA [Concomitant]
     Active Substance: DARUNAVIR ETHANOLATE
  21. LISINOPRIL [Concomitant]
     Active Substance: LISINOPRIL
  22. AMLODIPINE BESYLATE [Concomitant]
     Active Substance: AMLODIPINE BESYLATE
  23. ISRADIPINE [Concomitant]
     Active Substance: ISRADIPINE
  24. CLONIDINE [Concomitant]
     Active Substance: CLONIDINE
  25. HYDRALAZINE [Concomitant]
     Active Substance: HYDRALAZINE HYDROCHLORIDE
  26. ROSUVASTATIN [Concomitant]
     Active Substance: ROSUVASTATIN
  27. IBUPROFEN [Concomitant]
     Active Substance: IBUPROFEN
  28. PROAIR HFA [Concomitant]
     Active Substance: ALBUTEROL SULFATE
  29. ALBUTEROL [Concomitant]
     Active Substance: ALBUTEROL
  30. AZITHROMYCIN [Concomitant]
     Active Substance: AZITHROMYCIN
  31. MUCINEX DM [Concomitant]
     Active Substance: DEXTROMETHORPHAN HYDROBROMIDE\GUAIFENESIN
  32. CARVEDILOL [Concomitant]
     Active Substance: CARVEDILOL
  33. SULFAMETHOXAZOLE\TRIMETHOPRIM [Concomitant]
     Active Substance: SULFAMETHOXAZOLE\TRIMETHOPRIM
  34. TEMAZEPAM [Concomitant]
     Active Substance: TEMAZEPAM
  35. DOXYCYCLINE [Concomitant]
     Active Substance: DOXYCYCLINE
  36. HYDROCODONE [Concomitant]
     Active Substance: HYDROCODONE
  37. FLUCONAZOLE [Concomitant]
     Active Substance: FLUCONAZOLE
  38. PROMETHAZINE [Concomitant]
     Active Substance: PROMETHAZINE HYDROCHLORIDE
  39. REME TUSSIN DM [Concomitant]
  40. BENZONATATE [Concomitant]
     Active Substance: BENZONATATE
  41. LEVAQUIN [Concomitant]
     Active Substance: LEVOFLOXACIN
  42. CIPROFLOXACIN [Concomitant]
     Active Substance: CIPROFLOXACIN
  43. CEPHALEXIN [Concomitant]
     Active Substance: CEPHALEXIN
  44. HYDROMET [HOMATROPINE METHYLBROMIDE;HYDROCODONE BITARTRATE] [Concomitant]
  45. MONTELUKAST [Concomitant]
     Active Substance: MONTELUKAST SODIUM
  46. LEVOFLOXACIN [Concomitant]
     Active Substance: LEVOFLOXACIN
  47. ZOSTAVAX [Concomitant]
     Active Substance: VARICELLA-ZOSTER VIRUS STRAIN OKA/MERCK LIVE ANTIGEN
  48. ASCORBIC ACID\BIOTIN\CALCIUM PANTOTHENATE\CYANOCOBALAMIN\FOLIC ACID\NI [Concomitant]
     Active Substance: ASCORBIC ACID\BIOTIN\CALCIUM PANTOTHENATE\CYANOCOBALAMIN\FOLIC ACID\NIACINAMIDE\PYRIDOXINE HYDROCHLO
  49. MEGESTROL ACETATE [Concomitant]
     Active Substance: MEGESTROL ACETATE
  50. METRONIDAZOLE [Concomitant]
     Active Substance: METRONIDAZOLE
  51. TRAMADOL [Concomitant]
     Active Substance: TRAMADOL
  52. LIPITOR [Concomitant]
     Active Substance: ATORVASTATIN CALCIUM
  53. ATORVASTATIN [Concomitant]
     Active Substance: ATORVASTATIN
  54. EPOGEN [Concomitant]
     Active Substance: ERYTHROPOIETIN
  55. PROCRIT [Concomitant]
     Active Substance: ERYTHROPOIETIN

REACTIONS (13)
  - Chronic kidney disease [Unknown]
  - End stage renal disease [Not Recovered/Not Resolved]
  - Renal failure [Unknown]
  - Acute kidney injury [Unknown]
  - Tooth loss [Not Recovered/Not Resolved]
  - Tooth fracture [Unknown]
  - Bone density decreased [Unknown]
  - Pain [Unknown]
  - Emotional distress [Unknown]
  - Dizziness [Unknown]
  - Orthostatic hypotension [Unknown]
  - Asthenia [Unknown]
  - Abdominal pain [Unknown]

NARRATIVE: CASE EVENT DATE: 20070601
